FAERS Safety Report 15322579 (Version 1)
Quarter: 2018Q3

REPORT INFORMATION
  Report Type: Spontaneous
  Country: US (occurrence: US)
  Receive Date: 20180821
  Receipt Date: 20180821
  Transmission Date: 20181010
  Serious: Yes (Other)
  Sender: FDA-Public Use
  Company Number: None

PATIENT
  Age: 68 Year
  Sex: Male
  Weight: 78.75 kg

DRUGS (15)
  1. NORVASC [Concomitant]
     Active Substance: AMLODIPINE BESYLATE
  2. C [Concomitant]
  3. LIORESAL [Concomitant]
     Active Substance: BACLOFEN
  4. LIPITOR [Concomitant]
     Active Substance: ATORVASTATIN CALCIUM
  5. GILENYA [Suspect]
     Active Substance: FINGOLIMOD HYDROCHLORIDE
     Indication: MULTIPLE SCLEROSIS
     Dosage: ?          QUANTITY:1 CAPSULE(S);?
     Route: 048
     Dates: start: 20120701, end: 20180801
  6. EZETIMIBE (ZETA) [Concomitant]
  7. TELMISARTAN (MICARDIS) [Concomitant]
  8. PAROXETINE (PAXIL) [Concomitant]
  9. COLCHICINE. [Concomitant]
     Active Substance: COLCHICINE
  10. VITAMIN D Z (EERGOCALCIFEROL) [Concomitant]
  11. GABAPENTIN (NEURONTIN ) [Concomitant]
  12. ASPIRIN EC [Concomitant]
     Active Substance: ASPIRIN
  13. SUPER B CCOMPLEX [Concomitant]
  14. VITAMIN D3 [Concomitant]
     Active Substance: CHOLECALCIFEROL
  15. VITAMIN B12 [Concomitant]
     Active Substance: CYANOCOBALAMIN

REACTIONS (1)
  - Malignant melanoma [None]

NARRATIVE: CASE EVENT DATE: 20180801
